FAERS Safety Report 17555349 (Version 2)
Quarter: 2020Q2

REPORT INFORMATION
  Report Type: Spontaneous
  Country: US (occurrence: US)
  Receive Date: 20200318
  Receipt Date: 20200512
  Transmission Date: 20200713
  Serious: Yes (Hospitalization, Other)
  Sender: FDA-Public Use
  Company Number: US-VERTEX PHARMACEUTICALS-2020-005484

PATIENT
  Age: 34 Year
  Sex: Male

DRUGS (1)
  1. TRIKAFTA [Suspect]
     Active Substance: ELEXACAFTOR\IVACAFTOR\TEZACAFTOR
     Indication: CYSTIC FIBROSIS
     Dosage: REGULAR DOSAGE
     Route: 048
     Dates: start: 20191211

REACTIONS (2)
  - Generalised tonic-clonic seizure [Recovering/Resolving]
  - Back injury [Recovering/Resolving]

NARRATIVE: CASE EVENT DATE: 202001
